FAERS Safety Report 10207212 (Version 1)
Quarter: 2014Q2

REPORT INFORMATION
  Report Type: Spontaneous
  Country: US (occurrence: US)
  Receive Date: 20140530
  Receipt Date: 20140530
  Transmission Date: 20141212
  Serious: No
  Sender: FDA-Public Use
  Company Number: US-GLAXOSMITHKLINE-A1024546A

PATIENT
  Age: 32 Year
  Sex: Female

DRUGS (3)
  1. VENTOLIN [Suspect]
     Indication: BRONCHOSPASM
     Dosage: 2PUFF TWICE PER DAY
     Route: 055
     Dates: start: 201301
  2. SINGULAR [Concomitant]
  3. HYDROCHLOROTHIAZIDE [Concomitant]

REACTIONS (4)
  - Wheezing [Not Recovered/Not Resolved]
  - Cough [Not Recovered/Not Resolved]
  - Drug ineffective [Unknown]
  - Product quality issue [Unknown]
